FAERS Safety Report 13514028 (Version 1)
Quarter: 2017Q2

REPORT INFORMATION
  Report Type: Spontaneous
  Country: US (occurrence: US)
  Receive Date: 20170504
  Receipt Date: 20170504
  Transmission Date: 20170830
  Serious: No
  Sender: FDA-Public Use
  Company Number: US-PFIZER INC-2017102613

PATIENT
  Age: 55 Year
  Sex: Male

DRUGS (4)
  1. KADIAN [Suspect]
     Active Substance: MORPHINE SULFATE
     Dosage: UNK (30)
  2. MORPHINE SULFATE. [Suspect]
     Active Substance: MORPHINE SULFATE
     Dosage: 30 MG, UNK
  3. OXYMORPHONE [Suspect]
     Active Substance: OXYMORPHONE
     Dosage: UNK (30)
  4. EMBETA [Suspect]
     Active Substance: METOPROLOL TARTRATE
     Dosage: UNK (30)

REACTIONS (1)
  - Drug ineffective [Unknown]
